FAERS Safety Report 14233480 (Version 1)
Quarter: 2017Q4

REPORT INFORMATION
  Report Type: Spontaneous
  Country: GB (occurrence: GB)
  Receive Date: 20171128
  Receipt Date: 20171128
  Transmission Date: 20180321
  Serious: Yes (Other)
  Sender: FDA-Public Use
  Company Number: GB-TEVA-152875ISR

PATIENT
  Sex: Male

DRUGS (6)
  1. IBUPROFEN. [Suspect]
     Active Substance: IBUPROFEN
     Route: 065
  2. LOFEPRAMINE [Suspect]
     Active Substance: LOFEPRAMINE
     Route: 065
  3. ACETYLSALICYLIC ACID [Suspect]
     Active Substance: ASPIRIN
     Route: 065
  4. ALCOHOL. [Suspect]
     Active Substance: ALCOHOL
     Route: 065
  5. PAROXETINE. [Suspect]
     Active Substance: PAROXETINE
     Route: 065
  6. CODEINE [Suspect]
     Active Substance: CODEINE
     Route: 065

REACTIONS (4)
  - Suicide attempt [Unknown]
  - Overdose [Unknown]
  - Completed suicide [Unknown]
  - Drug withdrawal syndrome [Unknown]

NARRATIVE: CASE EVENT DATE: 20020406
